FAERS Safety Report 6643656-5 (Version None)
Quarter: 2010Q1

REPORT INFORMATION
  Report Type: 
  Country: None (occurrence: None)
  Receive Date: 20100321
  Receipt Date: 20100308
  Transmission Date: 20100710
  Serious: Yes (Hospitalization)
  Sender: FDA-Public Use
  Company Number: US-ELI_LILLY_AND_COMPANY-US201002000499

PATIENT
  Sex: Female
  Weight: 185.94 kg

DRUGS (11)
  1. BYETTA [Suspect]
     Indication: TYPE 2 DIABETES MELLITUS
     Dosage: 5 UG, 2/D
     Route: 058
     Dates: start: 20080609, end: 20080709
  2. BYETTA [Suspect]
     Dosage: 10 UG, 2/D
     Route: 058
     Dates: start: 20080710, end: 20100110
  3. NOVOLOG MIX 70/30 [Concomitant]
     Indication: TYPE 2 DIABETES MELLITUS
     Dosage: UNK, 2/D
  4. GLYBURIDE AND METFORMIN HYDROCHLORIDE [Concomitant]
     Indication: TYPE 2 DIABETES MELLITUS
     Dosage: UNK, 2/D
  5. IRON [Concomitant]
     Indication: SUPPLEMENTATION THERAPY
     Dosage: 65 MG, DAILY (1/D)
     Dates: start: 20090101
  6. ZOCOR [Concomitant]
     Dosage: 10 MG, EACH EVENING
  7. SINGULAIR [Concomitant]
     Dosage: 10 MG, EACH EVENING
  8. WARFARIN SODIUM [Concomitant]
     Dosage: 6 MG, EACH EVENING
  9. LISINOPRIL [Concomitant]
     Dosage: 10 MG, DAILY (1/D)
  10. SIMVASTATIN [Concomitant]
  11. GLYBURIDE AND METFORMIN HCL [Concomitant]

REACTIONS (4)
  - FUNGAL INFECTION [None]
  - OFF LABEL USE [None]
  - PNEUMONIA [None]
  - URINARY INCONTINENCE [None]
